FAERS Safety Report 7352996-6 (Version None)
Quarter: 2011Q1

REPORT INFORMATION
  Report Type: 
  Country: None (occurrence: None)
  Receive Date: 20110315
  Receipt Date: 20101117
  Transmission Date: 20110831
  Serious: Yes (Hospitalization)
  Sender: FDA-Public Use
  Company Number: A0896765A

PATIENT
  Age: 62 Year
  Sex: Female
  Weight: 79.5 kg

DRUGS (10)
  1. KDUR [Concomitant]
  2. AROMASIN [Concomitant]
  3. AVANDIA [Suspect]
     Indication: DIABETES MELLITUS
     Dosage: 4MG PER DAY
     Route: 048
     Dates: end: 20070601
  4. ALTACE [Concomitant]
  5. COREG [Concomitant]
  6. ALDACTONE [Concomitant]
  7. ZETIA [Concomitant]
  8. FOLTX [Concomitant]
  9. PRAVACHOL [Concomitant]
  10. COUMADIN [Concomitant]

REACTIONS (3)
  - BRADYCARDIA [None]
  - ISCHAEMIC CARDIOMYOPATHY [None]
  - CARDIAC FAILURE CONGESTIVE [None]
